FAERS Safety Report 5724689-X (Version None)
Quarter: 2008Q2

REPORT INFORMATION
  Report Type: 
  Country: None (occurrence: None)
  Receive Date: 20080501
  Receipt Date: 20080430
  Transmission Date: 20081010
  Serious: Yes (Death, Hospitalization)
  Sender: FDA-Public Use
  Company Number: BE-WYE-G01485908

PATIENT
  Sex: Male

DRUGS (1)
  1. TYGACIL [Suspect]
     Indication: WOUND INFECTION STAPHYLOCOCCAL
     Dosage: NOT PROVIDED
     Route: 042

REACTIONS (1)
  - HEPATORENAL SYNDROME [None]
